FAERS Safety Report 10404023 (Version 1)
Quarter: 2014Q1

REPORT INFORMATION
  Report Type: Spontaneous
  Country: US (occurrence: None)
  Receive Date: 20131018
  Receipt Date: 20131018
  Transmission Date: 20141002
  Serious: No
  Sender: FDA-Public Use
  Company Number: AEGR000062

PATIENT
  Age: 62 Year
  Sex: Female
  Weight: 72.6 kg

DRUGS (10)
  1. JUXTAPID [Suspect]
     Indication: TYPE IIA HYPERLIPIDAEMIA
     Route: 048
     Dates: start: 201303
  2. VITAMINS [Suspect]
     Indication: PRODUCT USED FOR UNKNOWN INDICATION
     Route: 048
     Dates: start: 201303, end: 2013
  3. NOTRIPTYLINE (NORTRIPTYLINE HYDROCHLORIDE) [Concomitant]
  4. LORAZEPAM (LORAZEPAM) [Concomitant]
  5. VIBRYD (VILAZODONE HYDROCHLORIDE) [Concomitant]
  6. LAMICTAL (LAMOTRIGINE) [Concomitant]
  7. SYNTHROID (LEVOTHYROXINE SODIUM) [Concomitant]
  8. FLUTICASONE (FLUTICASONE) [Concomitant]
  9. PILOCARPINE (PILOCARDPINE HYDROCHLORIDE) [Concomitant]
  10. NEXIUM (ESOMEPRAZOLE MAGNESIUM) [Concomitant]

REACTIONS (1)
  - Rash macular [None]
